FAERS Safety Report 24622110 (Version 1)
Quarter: 2024Q4

REPORT INFORMATION
  Report Type: Report from Study
  Country: US (occurrence: US)
  Receive Date: 20241114
  Receipt Date: 20241114
  Transmission Date: 20250115
  Serious: No
  Sender: Day One Biopharmaceuticals
  Company Number: US-Day One Biopharmaceuticals Inc.-2024US001085

PATIENT

DRUGS (1)
  1. OJEMDA [Suspect]
     Active Substance: TOVORAFENIB
     Indication: Optic nerve neoplasm
     Dosage: 100 MG; SHOULD BE TAKING 6 TABLETS WEEKLY
     Route: 065
     Dates: start: 20241101

REACTIONS (3)
  - Dizziness [Recovered/Resolved]
  - Product communication issue [Recovered/Resolved]
  - Vomiting [Recovered/Resolved]

NARRATIVE: CASE EVENT DATE: 20241101
